FAERS Safety Report 4632767-1 (Version None)
Quarter: 2005Q2

REPORT INFORMATION
  Report Type: 
  Country: None (occurrence: None)
  Receive Date: 20050408
  Receipt Date: 20050408
  Transmission Date: 20051028
  Serious: Yes (Hospitalization)
  Sender: FDA-Public Use
  Company Number: None

PATIENT
  Sex: Female
  Weight: 71.2147 kg

DRUGS (4)
  1. GM-CSF [Suspect]
     Indication: NON-HODGKIN'S LYMPHOMA
     Dosage: 125 MCG QDX4@Q4W KS SUBCUTANEOUS
     Route: 058
     Dates: start: 20050406, end: 20050921
  2. ID-KLH [Suspect]
     Dosage: .5 CC Q4WKS SUBCUTANEOUS
     Route: 058
     Dates: start: 20050406, end: 20050821
  3. TOPROL-XL [Concomitant]
  4. EVISTA [Concomitant]

REACTIONS (4)
  - BACK PAIN [None]
  - CHEST PAIN [None]
  - HEADACHE [None]
  - PELVIC PAIN [None]
